FAERS Safety Report 19804896 (Version 1)
Quarter: 2021Q3

REPORT INFORMATION
  Report Type: Report from Study
  Country: JP (occurrence: JP)
  Receive Date: 20210908
  Receipt Date: 20210908
  Transmission Date: 20211014
  Serious: Yes (Death)
  Sender: FDA-Public Use
  Company Number: JP-PFIZER INC-202101147949

PATIENT
  Age: 79 Year
  Sex: Male
  Weight: 65.1 kg

DRUGS (23)
  1. FEBURIC [Concomitant]
     Active Substance: FEBUXOSTAT
     Dosage: UNK
     Route: 048
  2. TANADOPA [Concomitant]
     Active Substance: DOCARPAMINE
     Indication: CARDIAC AMYLOIDOSIS
     Dosage: UNK
     Route: 048
     Dates: start: 20201020
  3. DOBUPUM [Concomitant]
     Active Substance: DOBUTAMINE HYDROCHLORIDE
     Indication: CARDIAC AMYLOIDOSIS
     Dosage: UNK
     Dates: start: 20200422, end: 20200506
  4. FUROSEMIDE. [Concomitant]
     Active Substance: FUROSEMIDE
     Dosage: UNK
     Dates: start: 20210105
  5. MEROPENEM. [Concomitant]
     Active Substance: MEROPENEM
     Dosage: UNK
     Dates: start: 20210104
  6. TEICOPLANIN [Concomitant]
     Active Substance: TEICOPLANIN
     Dosage: UNK
     Dates: start: 20210104
  7. BISOPROLOL FUMARATE. [Concomitant]
     Active Substance: BISOPROLOL FUMARATE
     Indication: CARDIAC AMYLOIDOSIS
     Dosage: UNK
     Route: 048
  8. THYRADIN [Concomitant]
     Active Substance: LEVOTHYROXINE
     Dosage: UNK
     Route: 048
  9. DOBUPUM [Concomitant]
     Active Substance: DOBUTAMINE HYDROCHLORIDE
     Dosage: UNK
     Dates: start: 20201228
  10. VYNDAQEL [Suspect]
     Active Substance: TAFAMIDIS MEGLUMINE
     Dosage: 40 MG, 1X/DAY
     Dates: start: 20200513, end: 20210111
  11. FUROSEMIDE. [Concomitant]
     Active Substance: FUROSEMIDE
     Indication: CARDIAC AMYLOIDOSIS
     Dosage: UNK
     Route: 048
  12. SPIRONOLACTONE. [Concomitant]
     Active Substance: SPIRONOLACTONE
     Indication: CARDIAC AMYLOIDOSIS
     Dosage: UNK
     Route: 048
  13. FUROSEMIDE. [Concomitant]
     Active Substance: FUROSEMIDE
     Indication: CARDIAC AMYLOIDOSIS
     Dosage: UNK
     Dates: start: 20200421, end: 20200502
  14. TAZOPIPE [Concomitant]
     Active Substance: PIPERACILLIN SODIUM\TAZOBACTAM SODIUM
     Dosage: UNK
     Dates: start: 20201228, end: 20210104
  15. ELIQUIS [Concomitant]
     Active Substance: APIXABAN
     Dosage: UNK
     Route: 048
     Dates: end: 20210106
  16. SAMSCA [Concomitant]
     Active Substance: TOLVAPTAN
     Indication: CARDIAC AMYLOIDOSIS
     Dosage: UNK
     Route: 048
  17. VYNDAQEL [Suspect]
     Active Substance: TAFAMIDIS MEGLUMINE
     Dosage: 80 MG
     Dates: start: 20200421, end: 20200512
  18. FLUITRAN [TRICHLORMETHIAZIDE] [Concomitant]
     Active Substance: TRICHLORMETHIAZIDE
     Indication: CARDIAC AMYLOIDOSIS
     Dosage: UNK
     Route: 048
     Dates: start: 20200529
  19. INOVAN [DOPAMINE HYDROCHLORIDE] [Concomitant]
     Indication: CARDIAC AMYLOIDOSIS
     Dosage: UNK
     Dates: start: 20210105
  20. PIMOBENDAN [Concomitant]
     Active Substance: PIMOBENDAN
     Indication: CARDIAC AMYLOIDOSIS
     Dosage: UNK
     Route: 048
  21. FUROSEMIDE. [Concomitant]
     Active Substance: FUROSEMIDE
     Dosage: UNK
     Dates: start: 20200923, end: 20201005
  22. DOBUPUM [Concomitant]
     Active Substance: DOBUTAMINE HYDROCHLORIDE
     Dosage: UNK
     Dates: start: 20200923, end: 20201023
  23. MEROPENEM. [Concomitant]
     Active Substance: MEROPENEM
     Dosage: UNK
     Dates: start: 20200928, end: 20201009

REACTIONS (1)
  - Death [Fatal]

NARRATIVE: CASE EVENT DATE: 20210113
